FAERS Safety Report 8835152 (Version 1)
Quarter: 2012Q4

REPORT INFORMATION
  Report Type: 
  Country: US (occurrence: US)
  Receive Date: 20121011
  Receipt Date: 20121011
  Transmission Date: 20130627
  Serious: Yes (Other)
  Sender: FDA-Public Use
  Company Number: US-SANOFI-AVENTIS-2012SA072530

PATIENT
  Sex: Male

DRUGS (1)
  1. ALLEGRA [Suspect]
     Indication: ALLERGY
     Route: 048

REACTIONS (3)
  - Hernia repair [Unknown]
  - Prostatomegaly [Unknown]
  - Prostatic specific antigen increased [Unknown]
